FAERS Safety Report 4868017-0 (Version None)
Quarter: 2005Q4

REPORT INFORMATION
  Report Type: 
  Country: None (occurrence: None)
  Receive Date: 20051229
  Receipt Date: 20051207
  Transmission Date: 20060501
  Serious: Yes (Hospitalization)
  Sender: FDA-Public Use
  Company Number: US-BOEHRINGER INGELHEIM PHARMACEUTICALS, INC.-2005-UK-02574UK

PATIENT
  Sex: Male
  Weight: 75 kg

DRUGS (3)
  1. AGGRENOX [Suspect]
     Indication: CEREBROVASCULAR ACCIDENT PROPHYLAXIS
     Dosage: 1 CAPSULE TWICE DAILY
     Route: 048
     Dates: start: 20041026, end: 20051105
  2. MICARDIS [Suspect]
     Indication: CEREBROVASCULAR ACCIDENT PROPHYLAXIS
     Dosage: 1 TABLET DAILY
     Route: 048
     Dates: start: 20041026, end: 20051105
  3. CLOPIDOGREL BISULFATE [Suspect]
     Indication: CEREBROVASCULAR ACCIDENT PROPHYLAXIS
     Dosage: 1 TABLET DAILY
     Route: 048
     Dates: start: 20041026, end: 20051105

REACTIONS (2)
  - HAEMATEMESIS [None]
  - OESOPHAGITIS [None]
